FAERS Safety Report 20725219 (Version 1)
Quarter: 2022Q2

REPORT INFORMATION
  Report Type: Spontaneous
  Country: US (occurrence: None)
  Receive Date: 20220419
  Receipt Date: 20220419
  Transmission Date: 20220721
  Serious: Yes (Hospitalization)
  Sender: FDA-Public Use
  Company Number: None

PATIENT
  Age: 73 Year
  Sex: Female
  Weight: 110.7 kg

DRUGS (1)
  1. LENALIDOMIDE [Suspect]
     Active Substance: LENALIDOMIDE
     Dates: end: 20220205

REACTIONS (9)
  - Proctalgia [None]
  - Dyschezia [None]
  - Dysuria [None]
  - Perirectal abscess [None]
  - Proctitis [None]
  - Platelet count decreased [None]
  - Blood alkaline phosphatase increased [None]
  - Blood potassium decreased [None]
  - Blood chloride decreased [None]

NARRATIVE: CASE EVENT DATE: 20220204
